FAERS Safety Report 10062295 (Version 1)
Quarter: 2014Q1

REPORT INFORMATION
  Report Type: Spontaneous
  Country: US (occurrence: None)
  Receive Date: 20140312
  Receipt Date: 20140312
  Transmission Date: 20141002
  Serious: Yes (Other)
  Sender: FDA-Public Use
  Company Number: E2080-00659-SPO-US

PATIENT
  Age: 59 Year
  Sex: Female

DRUGS (1)
  1. BANZEL [Suspect]
     Indication: EPILEPSY
     Dosage: UNKNOWN, BID, ORAL
     Route: 048
     Dates: start: 201307, end: 201308

REACTIONS (7)
  - Convulsion [None]
  - Cognitive disorder [None]
  - Diarrhoea [None]
  - Nausea [None]
  - Coordination abnormal [None]
  - Somnolence [None]
  - Drug administration error [None]
